FAERS Safety Report 22519129 (Version 29)
Quarter: 2024Q4

REPORT INFORMATION
  Report Type: Report from Study
  Country: CO (occurrence: CO)
  Receive Date: 20230605
  Receipt Date: 20241224
  Transmission Date: 20250115
  Serious: Yes (Life-Threatening, Hospitalization, Other)
  Sender: TAKEDA
  Company Number: CO-TAKEDA-2023TUS053983

PATIENT
  Age: 27 Year
  Sex: Female
  Weight: 52 kg

DRUGS (16)
  1. ICATIBANT [Suspect]
     Active Substance: ICATIBANT ACETATE
     Indication: Hereditary angioedema
     Dosage: 1 DOSAGE FORM
  2. ICATIBANT [Suspect]
     Active Substance: ICATIBANT ACETATE
     Dosage: UNK
  3. ICATIBANT [Suspect]
     Active Substance: ICATIBANT ACETATE
     Dosage: 30 MILLIGRAM
  4. ICATIBANT [Suspect]
     Active Substance: ICATIBANT ACETATE
     Dosage: UNK
  5. TAKHZYRO [Suspect]
     Active Substance: LANADELUMAB-FLYO
     Indication: Hereditary angioedema
     Dosage: 150 MILLIGRAM, MONTHLY
     Dates: start: 20240101
  6. TAKHZYRO [Suspect]
     Active Substance: LANADELUMAB-FLYO
     Dosage: 300 MILLIGRAM, Q2WEEKS
  7. TAKHZYRO [Suspect]
     Active Substance: LANADELUMAB-FLYO
     Dosage: 2 MILLILITER, MONTHLY
  8. TAKHZYRO [Suspect]
     Active Substance: LANADELUMAB-FLYO
     Dosage: 300 MILLIGRAM, MONTHLY
  9. TAKHZYRO [Suspect]
     Active Substance: LANADELUMAB-FLYO
     Dosage: UNK, MONTHLY
  10. TAKHZYRO [Suspect]
     Active Substance: LANADELUMAB-FLYO
     Dosage: 300 MILLIGRAM, MONTHLY
  11. TAKHZYRO [Suspect]
     Active Substance: LANADELUMAB-FLYO
     Dosage: 300 MILLIGRAM, MONTHLY
  12. TAKHZYRO [Suspect]
     Active Substance: LANADELUMAB-FLYO
     Dosage: UNK, MONTHLY
  13. TAKHZYRO [Suspect]
     Active Substance: LANADELUMAB-FLYO
     Dosage: 300 MILLIGRAM, MONTHLY
  14. VENLAFAXINE [Concomitant]
     Active Substance: VENLAFAXINE HYDROCHLORIDE
     Dosage: 125 MILLIGRAM, QD
  15. LEVOMEPROMAZINE [Concomitant]
     Active Substance: LEVOMEPROMAZINE
     Dosage: 25 MILLIGRAM, QD
  16. IMPLANON [Concomitant]
     Active Substance: ETONOGESTREL
     Dosage: UNK

REACTIONS (37)
  - Suicide attempt [Unknown]
  - Neuralgia [Not Recovered/Not Resolved]
  - Oropharyngeal pain [Not Recovered/Not Resolved]
  - Pain in extremity [Not Recovered/Not Resolved]
  - Facial pain [Recovering/Resolving]
  - Neck pain [Not Recovered/Not Resolved]
  - Depression [Recovering/Resolving]
  - Somnolence [Recovering/Resolving]
  - Incoherent [Recovering/Resolving]
  - Teratoma [Recovering/Resolving]
  - Cholelithiasis [Recovering/Resolving]
  - Hereditary angioedema [Recovering/Resolving]
  - Pruritus [Recovered/Resolved]
  - Application site pruritus [Recovering/Resolving]
  - Abdominal pain lower [Not Recovered/Not Resolved]
  - Procedural pain [Not Recovered/Not Resolved]
  - Incorrect dose administered [Unknown]
  - Product use issue [Unknown]
  - Fatigue [Unknown]
  - Crying [Not Recovered/Not Resolved]
  - Unemployment [Unknown]
  - Illness [Unknown]
  - Depressed mood [Not Recovered/Not Resolved]
  - Inflammation [Recovered/Resolved]
  - Limb injury [Recovering/Resolving]
  - Insomnia [Recovering/Resolving]
  - Back pain [Recovering/Resolving]
  - Dysuria [Recovering/Resolving]
  - Malaise [Recovering/Resolving]
  - Weight increased [Not Recovered/Not Resolved]
  - Product prescribing issue [Unknown]
  - Weight decreased [Unknown]
  - Treatment noncompliance [Unknown]
  - Rash macular [Recovered/Resolved]
  - Urinary tract infection [Recovering/Resolving]
  - Abdominal pain [Recovering/Resolving]
  - Diarrhoea [Recovering/Resolving]

NARRATIVE: CASE EVENT DATE: 20230628
